FAERS Safety Report 5192902-6 (Version None)
Quarter: 2006Q4

REPORT INFORMATION
  Report Type: 
  Country: None (occurrence: None)
  Receive Date: 20061228
  Receipt Date: 20060210
  Transmission Date: 20070319
  Serious: No
  Sender: FDA-Public Use
  Company Number: US-GLAXOSMITHKLINE-A0593287A

PATIENT
  Age: 64 Year
  Sex: Male

DRUGS (6)
  1. FLONASE [Suspect]
     Dosage: 1SPR TWICE PER DAY
     Route: 045
     Dates: start: 20060127, end: 20060210
  2. BUSPIRONE HCL [Concomitant]
  3. DILTIAZEM HCL [Concomitant]
  4. TERAZOSIN HCL [Concomitant]
  5. AMITRIPTYLINE HCL [Concomitant]
  6. LEVOTHYROXINE SODIUM [Concomitant]

REACTIONS (1)
  - DRUG INEFFECTIVE [None]
